FAERS Safety Report 8596786-5 (Version None)
Quarter: 2012Q3

REPORT INFORMATION
  Report Type: 
  Country: None (occurrence: None)
  Receive Date: 20120815
  Receipt Date: 20120808
  Transmission Date: 20120928
  Serious: Yes (Hospitalization, Other)
  Sender: FDA-Public Use
  Company Number: IN-COVIDIEN/TYCO HEALTHCARE/MALLINCKRODT-T201203087

PATIENT
  Age: 20 Year
  Sex: Female

DRUGS (6)
  1. ACETAMINOPHEN [Concomitant]
     Indication: ULCER
     Dosage: UNK
  2. AMOXICILINA + ACIDO CLAVULANICO    /00852501/ [Concomitant]
     Indication: ULCER
     Dosage: UNK
     Route: 042
  3. PENNSAID [Suspect]
     Indication: ULCER
     Dosage: 50 MG, BID X 7 DAYS
  4. METRONIDAZOLE [Concomitant]
     Indication: ULCER
     Dosage: UNK
     Route: 042
  5. PENNSAID [Suspect]
     Indication: TIBIA FRACTURE
     Dosage: 50 MG, BID X 20 DAYS
  6. RANITIDINE                         /00550802/ [Concomitant]
     Dosage: UNK

REACTIONS (4)
  - PLACENTAL INSUFFICIENCY [None]
  - OLIGOHYDRAMNIOS [None]
  - SKIN ULCER [None]
  - MATERNAL EXPOSURE DURING PREGNANCY [None]
